FAERS Safety Report 5119859-8 (Version None)
Quarter: 2006Q4

REPORT INFORMATION
  Report Type: 
  Country: None (occurrence: None)
  Receive Date: 20061003
  Receipt Date: 20060926
  Transmission Date: 20070319
  Serious: Yes (Other)
  Sender: FDA-Public Use
  Company Number: DE-ROXANE LABORATORIES, INC-2006-BP-11348RO

PATIENT
  Age: 46 Year
  Sex: Male

DRUGS (20)
  1. CLARITHROMYCIN [Suspect]
     Indication: BRONCHOPNEUMONIA
     Route: 048
     Dates: start: 20040401
  2. ZIDOVUDINE [Suspect]
     Indication: HIV INFECTION
     Dates: start: 19970601, end: 19970901
  3. LAMIVUDINE [Suspect]
     Indication: HIV INFECTION
     Dates: start: 19970601, end: 19970901
  4. LAMIVUDINE [Suspect]
     Dates: start: 19971001, end: 19990401
  5. LAMIVUDINE [Suspect]
     Dates: start: 20001001, end: 20010401
  6. LAMIVUDINE [Suspect]
     Dates: start: 20010401, end: 20030501
  7. LAMIVUDINE [Suspect]
     Dates: start: 20040401
  8. NELFINAVIR [Suspect]
     Indication: HIV INFECTION
     Dates: start: 19970601, end: 19970901
  9. NELFINAVIR [Suspect]
     Dates: start: 19971001, end: 19990401
  10. STAVUDINE [Suspect]
     Indication: HIV INFECTION
     Dates: start: 19971001, end: 19990401
  11. STAVUDINE [Suspect]
     Dates: start: 20010401, end: 20030501
  12. ABACAVIR [Suspect]
     Indication: HIV INFECTION
     Dates: start: 20001001, end: 20010401
  13. ABACAVIR [Suspect]
     Dates: start: 20010401, end: 20030501
  14. ABACAVIR [Suspect]
     Dates: start: 20040401
  15. LPV/R (RITRONAVIR-BOOSTED LOPINAVIR) [Suspect]
     Indication: HIV INFECTION
     Dates: start: 20001001, end: 20010401
  16. LPV/R (RITRONAVIR-BOOSTED LOPINAVIR) [Suspect]
     Dates: start: 20010401, end: 20030501
  17. INTERLEUKIN-2 [Suspect]
     Indication: HIV INFECTION
     Dates: start: 20010401, end: 20030501
  18. TENOFOVIR [Suspect]
     Indication: HIV INFECTION
     Dates: start: 20040401
  19. ATV/R (RITONAVIR-BOOSTED ATAZANAVIR [Suspect]
     Indication: HIV INFECTION
     Dates: start: 20040401
  20. SAQUINAVIR [Suspect]
     Indication: HIV INFECTION
     Dates: start: 20040401

REACTIONS (6)
  - ANAEMIA [None]
  - DISEASE PROGRESSION [None]
  - DRUG INEFFECTIVE [None]
  - IMMUNE RECONSTITUTION SYNDROME [None]
  - LIPOATROPHY [None]
  - PNEUMONITIS [None]
